FAERS Safety Report 14870001 (Version 2)
Quarter: 2018Q2

REPORT INFORMATION
  Report Type: Spontaneous
  Country: BD (occurrence: BD)
  Receive Date: 20180509
  Receipt Date: 20180511
  Transmission Date: 20180711
  Serious: Yes (Other)
  Sender: FDA-Public Use
  Company Number: BD-ROCHE-2120376

PATIENT
  Age: 52 Year
  Sex: Female

DRUGS (4)
  1. SANDOCAL-D [Concomitant]
     Dosage: 1 TABLET IN AFTERNOON
     Route: 065
  2. SINECOD [Concomitant]
     Active Substance: BUTAMIRATE CITRATE
     Route: 048
  3. ZINNAT [Concomitant]
     Active Substance: CEFUROXIME AXETIL
     Route: 048
  4. HERCEPTIN [Suspect]
     Active Substance: TRASTUZUMAB
     Indication: PRODUCT USED FOR UNKNOWN INDICATION
     Dosage: MOST RECENT DOSE OH HERCEPTIN ON 22/JUN/2016 400MG
     Route: 065
     Dates: end: 2016

REACTIONS (1)
  - Breast cancer metastatic [Unknown]
